FAERS Safety Report 21212007 (Version 1)
Quarter: 2022Q3

REPORT INFORMATION
  Report Type: Spontaneous
  Country: None (occurrence: US)
  Receive Date: 20220815
  Receipt Date: 20220815
  Transmission Date: 20221026
  Serious: Yes (Death)
  Sender: FDA-Public Use
  Company Number: US-Vero Biotech-2131882

PATIENT
  Age: 17 Year
  Sex: Male

DRUGS (2)
  1. GENOSYL [Suspect]
     Active Substance: NITRIC OXIDE
     Indication: Product used for unknown indication
     Route: 055
  2. GENOSYL [Suspect]
     Active Substance: NITRIC OXIDE

REACTIONS (2)
  - Death [Fatal]
  - Respiratory rate increased [Unknown]

NARRATIVE: CASE EVENT DATE: 20220804
